FAERS Safety Report 6758660-6 (Version None)
Quarter: 2010Q2

REPORT INFORMATION
  Report Type: 
  Country: None (occurrence: None)
  Receive Date: 20100602
  Receipt Date: 20100517
  Transmission Date: 20101027
  Serious: Yes (Other)
  Sender: FDA-Public Use
  Company Number: 2009AP003642

PATIENT
  Age: 40 Year
  Sex: Male

DRUGS (10)
  1. RISPERIDONE [Suspect]
  2. ABILITY (ARIPIPRAZOLE) [Suspect]
     Indication: METABOLIC SYNDROME
     Dosage: 15 MG;PO;QD
     Route: 048
     Dates: start: 20081001
  3. ABILITY (ARIPIPRAZOLE) [Suspect]
     Indication: SCHIZOAFFECTIVE DISORDER
     Dosage: 15 MG;PO;QD
     Route: 048
     Dates: start: 20081001
  4. DULOXETINE HYDROCHLORIDE [Suspect]
  5. MIRTAZAPINE [Suspect]
  6. QUETIAPINE FUMARATE [Suspect]
  7. VALPROATE SODIUM [Suspect]
  8. VENLAFAXINE HYDROCHLORIDE [Concomitant]
  9. LITHIUM [Concomitant]
  10. DRUG USED IN DIABETES [Concomitant]

REACTIONS (9)
  - BLOOD ALKALINE PHOSPHATASE INCREASED [None]
  - DIABETES MELLITUS [None]
  - GAMMA-GLUTAMYLTRANSFERASE INCREASED [None]
  - HEPATIC ENZYME INCREASED [None]
  - HYPOTHYROIDISM [None]
  - METABOLIC SYNDROME [None]
  - PSYCHOTIC DISORDER [None]
  - SCHIZOAFFECTIVE DISORDER [None]
  - WEIGHT INCREASED [None]
